FAERS Safety Report 23971065 (Version 2)
Quarter: 2024Q3

REPORT INFORMATION
  Report Type: Report from Study
  Country: JP (occurrence: JP)
  Receive Date: 20240613
  Receipt Date: 20240802
  Transmission Date: 20241017
  Serious: No
  Sender: MERZ
  Company Number: JP-teijin-202401932_XEO_P_1

PATIENT
  Age: 80 Year
  Sex: Female
  Weight: 52.9 kg

DRUGS (4)
  1. XEOMIN [Suspect]
     Active Substance: INCOBOTULINUMTOXINA
     Indication: Muscle spasticity
     Dosage: 400 025
     Route: 030
     Dates: start: 20240209, end: 20240209
  2. XEOMIN [Suspect]
     Active Substance: INCOBOTULINUMTOXINA
     Dosage: 400 025
     Route: 030
     Dates: start: 20230825, end: 20230825
  3. XEOMIN [Suspect]
     Active Substance: INCOBOTULINUMTOXINA
     Dosage: 400 025
     Route: 030
     Dates: start: 20231117, end: 20231117
  4. CARBIDOPA\LEVODOPA [Concomitant]
     Active Substance: CARBIDOPA\LEVODOPA
     Indication: Cerebrovascular accident
     Dosage: 300 MG
     Route: 048
     Dates: start: 20240524

REACTIONS (1)
  - No adverse event [Unknown]
